FAERS Safety Report 9196949 (Version 1)
Quarter: 2013Q1

REPORT INFORMATION
  Report Type: Spontaneous
  Country: BR (occurrence: BR)
  Receive Date: 20130328
  Receipt Date: 20130328
  Transmission Date: 20140127
  Serious: Yes (Other)
  Sender: FDA-Public Use
  Company Number: BR-PFIZER INC-2013094690

PATIENT
  Age: 59 Year
  Sex: Female
  Weight: 75 kg

DRUGS (3)
  1. FRONTAL [Suspect]
     Indication: SLEEP DISORDER
     Dosage: 0.25 MG, 1X/DAY AT NIGHT
     Route: 048
     Dates: start: 2008
  2. FELDENE [Concomitant]
     Indication: PAIN
     Dosage: ONE TABLET AS NEEDED
     Dates: start: 2008
  3. OMEPRAZOLE [Concomitant]
     Indication: GASTRIC DISORDER
     Dosage: ONE TABLET DAILY
     Dates: start: 2008

REACTIONS (2)
  - Neoplasm malignant [Unknown]
  - Pain [Not Recovered/Not Resolved]
